FAERS Safety Report 23669338 (Version 1)
Quarter: 2024Q1

REPORT INFORMATION
  Report Type: Spontaneous
  Country: US (occurrence: US)
  Receive Date: 20240325
  Receipt Date: 20240325
  Transmission Date: 20240409
  Serious: No
  Sender: FDA-Public Use
  Company Number: US-BAYER-2024A043876

PATIENT
  Age: 71 Year
  Sex: Male
  Weight: 68.9 kg

DRUGS (22)
  1. MIRALAX [Suspect]
     Active Substance: POLYETHYLENE GLYCOL 3350
  2. TREPROSTINIL SODIUM [Suspect]
     Active Substance: TREPROSTINIL SODIUM
     Dosage: 30 ?G, QID
     Route: 045
     Dates: start: 20240226
  3. MORPHINE SULFATE [Concomitant]
     Active Substance: MORPHINE SULFATE
  4. ALPRAZOLAM [Concomitant]
     Active Substance: ALPRAZOLAM
     Dosage: UNK
  5. ATORVASTATIN CALCIUM [Concomitant]
     Active Substance: ATORVASTATIN CALCIUM
  6. DILAUDID [Concomitant]
     Active Substance: HYDROMORPHONE HYDROCHLORIDE
  7. POTASSIUM CHLORIDE [Concomitant]
     Active Substance: POTASSIUM CHLORIDE
  8. CHOLECALCIFEROL [Concomitant]
     Active Substance: CHOLECALCIFEROL
  9. SOMA [Concomitant]
     Active Substance: CARISOPRODOL
  10. ALBUTEROL SULFATE [Concomitant]
     Active Substance: ALBUTEROL SULFATE
  11. LASIX [Concomitant]
     Active Substance: FUROSEMIDE
  12. PANTOPRAZOLE SODIUM [Concomitant]
     Active Substance: PANTOPRAZOLE SODIUM
  13. VITAMINS NOS [Concomitant]
     Active Substance: VITAMINS
  14. MELATONIN [Concomitant]
     Active Substance: MELATONIN
  15. FAMOTIDINE [Concomitant]
     Active Substance: FAMOTIDINE
  16. BIOTIN [Concomitant]
     Active Substance: BIOTIN
  17. OXYGEN [Concomitant]
     Active Substance: OXYGEN
  18. COMBIVENT RESPIMAT [Concomitant]
     Active Substance: ALBUTEROL SULFATE\IPRATROPIUM BROMIDE
  19. OXYCODONE HYDROCHLORIDE [Concomitant]
     Active Substance: OXYCODONE HYDROCHLORIDE
  20. TRAZODONE HCL [Concomitant]
     Active Substance: TRAZODONE HYDROCHLORIDE
  21. AS B [VITAMIN B COMPLEX] [Concomitant]
  22. DIPHENHYDRAMINE HYDROCHLORIDE [Concomitant]
     Active Substance: DIPHENHYDRAMINE HYDROCHLORIDE

REACTIONS (2)
  - Diarrhoea [None]
  - Constipation [None]

NARRATIVE: CASE EVENT DATE: 20240319
